FAERS Safety Report 5612720-1 (Version None)
Quarter: 2008Q1

REPORT INFORMATION
  Report Type: 
  Country: None (occurrence: None)
  Receive Date: 20080204
  Receipt Date: 20080123
  Transmission Date: 20080703
  Serious: Yes (Hospitalization)
  Sender: FDA-Public Use
  Company Number: FR-ELI_LILLY_AND_COMPANY-FR200801005086

PATIENT
  Age: 78 Year
  Sex: Female

DRUGS (8)
  1. FORTEO [Suspect]
     Indication: OSTEOPOROSIS
     Dosage: 20 UG, DAILY (1/D)
     Route: 058
     Dates: start: 20071215, end: 20080115
  2. TAHOR [Concomitant]
     Dosage: 1 D/F, DAILY (1/D)
  3. ATENOLOL [Concomitant]
     Dosage: 2 D/F, DAILY (1/D)
  4. PLAVIX [Concomitant]
     Dosage: 1 D/F, DAILY (1/D)
  5. KARDEGIC [Concomitant]
     Dosage: 1 D/F, DAILY (1/D)
  6. RAMIPRIL [Concomitant]
     Dosage: 2 D/F, DAILY (1/D)
  7. INIPOMP [Concomitant]
     Dosage: 1 D/F, DAILY (1/D)
  8. ATARAX [Concomitant]
     Dosage: 1 D/F, DAILY (1/D)

REACTIONS (1)
  - MYOCARDIAL INFARCTION [None]
